FAERS Safety Report 14785366 (Version 1)
Quarter: 2018Q2

REPORT INFORMATION
  Report Type: Report from Study
  Country: MY (occurrence: MY)
  Receive Date: 20180420
  Receipt Date: 20180420
  Transmission Date: 20180711
  Serious: Yes (Hospitalization, Other)
  Sender: FDA-Public Use
  Company Number: MY-TAKEDA-2018MPI003593

PATIENT

DRUGS (3)
  1. DEXAMETHASONE. [Suspect]
     Active Substance: DEXAMETHASONE
     Indication: PRODUCT USED FOR UNKNOWN INDICATION
     Dosage: UNK
     Route: 065
  2. LENALIDOMIDE [Concomitant]
     Active Substance: LENALIDOMIDE
     Dosage: UNK
     Route: 065
  3. IXAZOMIB [Suspect]
     Active Substance: IXAZOMIB
     Indication: PLASMA CELL MYELOMA
     Dosage: 4 MG, UNK
     Route: 065
     Dates: start: 20170118, end: 20180222

REACTIONS (3)
  - Hospitalisation [Unknown]
  - Therapeutic response decreased [Unknown]
  - Plasma cell myeloma [Unknown]
